FAERS Safety Report 7133258-9 (Version None)
Quarter: 2010Q4

REPORT INFORMATION
  Report Type: 
  Country: None (occurrence: None)
  Receive Date: 20101202
  Receipt Date: 20101122
  Transmission Date: 20110411
  Serious: Yes (Hospitalization)
  Sender: FDA-Public Use
  Company Number: PR-ABBOTT-10P-131-0687094-00

PATIENT
  Sex: Female
  Weight: 76.726 kg

DRUGS (13)
  1. NIASPAN [Suspect]
     Indication: BLOOD CHOLESTEROL INCREASED
     Dates: end: 20100801
  2. NIASPAN [Interacting]
     Indication: LIPIDS
     Dates: start: 20100801, end: 20100801
  3. ASPIRIN [Interacting]
     Indication: PROPHYLAXIS
     Dosage: 325MG ONE HOUR PRIOR NIASPAN 500
     Route: 048
     Dates: start: 20100701
  4. HUMULIN N [Concomitant]
     Indication: DIABETES MELLITUS
     Dosage: 30-40 UNITS DAILY
     Route: 058
  5. HUMULIN 70/30 [Concomitant]
     Indication: DIABETES MELLITUS
     Dosage: 40-40 UNITS DAILY
     Route: 058
  6. HYZAAR [Concomitant]
     Indication: HYPERTENSION
     Dosage: 100/12.5MG; 1 TABLET DAILY
     Route: 048
  7. HYZAAR [Concomitant]
     Dosage: 50MG; 1 TABLET DAILY
     Route: 048
  8. CARDURA [Concomitant]
     Indication: HYPERTENSION
     Dosage: 2MG; 1 TABLET DAILY
     Route: 048
  9. EFFEXOR [Concomitant]
     Indication: PRODUCT USED FOR UNKNOWN INDICATION
     Dosage: 75MG; 1 CAPSULE DAILY
     Route: 048
  10. LYRICA [Concomitant]
     Indication: DIABETIC NEUROPATHY
     Dosage: 1 CAPSULE THREE TIMES DAILY
     Route: 048
  11. PLAVIX [Concomitant]
     Indication: ANTICOAGULANT THERAPY
     Dosage: 75MG; 1 TABLET DAILY
     Route: 048
  12. ASPIRIN [Concomitant]
     Indication: ANTICOAGULANT THERAPY
     Dosage: 81MG; 1 TABLET DAILY
     Route: 048
  13. ATENOLOL [Concomitant]
     Indication: HYPERTENSION
     Dosage: 50MG; 1 TABLET DAILY
     Route: 048

REACTIONS (7)
  - DRUG INTERACTION [None]
  - MYOCARDIAL INFARCTION [None]
  - RASH [None]
  - RASH GENERALISED [None]
  - SPEECH DISORDER [None]
  - SWELLING [None]
  - VASCULITIS [None]
